FAERS Safety Report 5914093-3 (Version None)
Quarter: 2008Q4

REPORT INFORMATION
  Report Type: 
  Country: None (occurrence: None)
  Receive Date: 20081009
  Receipt Date: 20081001
  Transmission Date: 20090506
  Serious: Yes (Other)
  Sender: FDA-Public Use
  Company Number: US-SANOFI-SYNTHELABO-A03200803808

PATIENT
  Sex: Male

DRUGS (2)
  1. PLAVIX [Suspect]
     Indication: PLATELET AGGREGATION
     Dosage: UNK
     Route: 048
  2. PLAVIX [Suspect]
     Dosage: UNK
     Route: 048

REACTIONS (1)
  - REBOUND EFFECT [None]
